FAERS Safety Report 5121896-4 (Version None)
Quarter: 2006Q4

REPORT INFORMATION
  Report Type: 
  Country: None (occurrence: None)
  Receive Date: 20061006
  Receipt Date: 20060927
  Transmission Date: 20070319
  Serious: Yes (Death, Other)
  Sender: FDA-Public Use
  Company Number: PT-JNJFOC-20061000083

PATIENT
  Age: 53 Year
  Sex: Female

DRUGS (2)
  1. REMICADE [Suspect]
     Dosage: ^15 DAYS AFTER FIRST DOSE^
  2. REMICADE [Suspect]
     Indication: CROHN'S DISEASE

REACTIONS (6)
  - BACK PAIN [None]
  - DEATH [None]
  - GALLBLADDER CANCER [None]
  - HYPOTENSION [None]
  - ILEOSTOMY [None]
  - INFUSION RELATED REACTION [None]
